FAERS Safety Report 11107606 (Version 1)
Quarter: 2015Q2

REPORT INFORMATION
  Report Type: Spontaneous
  Country: FR (occurrence: FR)
  Receive Date: 20150512
  Receipt Date: 20150512
  Transmission Date: 20150821
  Serious: Yes (Hospitalization)
  Sender: FDA-Public Use
  Company Number: PHHY2015FR055796

PATIENT
  Age: 81 Year
  Sex: Male

DRUGS (7)
  1. SINTROM [Suspect]
     Active Substance: ACENOCOUMAROL
     Indication: PROPHYLAXIS
     Dosage: 1 MG, QD
     Route: 048
     Dates: end: 20150130
  2. NEULEPTIL [Suspect]
     Active Substance: PERICIAZINE
     Indication: PSYCHOTIC DISORDER
     Dosage: 25 DRP, QD
     Route: 048
     Dates: end: 20150130
  3. SIMVASTATINE [Concomitant]
     Active Substance: SIMVASTATIN
     Indication: HYPERCHOLESTEROLAEMIA
     Route: 048
  4. LACTULOSE. [Suspect]
     Active Substance: LACTULOSE
     Indication: HEPATIC ENCEPHALOPATHY
     Dosage: UNK
     Route: 048
     Dates: end: 20150130
  5. ZOLPIDEM [Suspect]
     Active Substance: ZOLPIDEM\ZOLPIDEM TARTRATE
     Indication: INSOMNIA
     Dosage: 1 DF, QD
     Route: 048
     Dates: end: 20150130
  6. DIGOXIN. [Suspect]
     Active Substance: DIGOXIN
     Indication: ARRHYTHMIA
     Dosage: UNK
     Route: 048
     Dates: end: 20150130
  7. RILMENIDINE [Concomitant]
     Active Substance: RILMENIDINE
     Indication: HYPERTENSION
     Route: 048

REACTIONS (1)
  - Subdural haematoma [Recovered/Resolved with Sequelae]

NARRATIVE: CASE EVENT DATE: 20150129
